FAERS Safety Report 7122725-X (Version None)
Quarter: 2010Q4

REPORT INFORMATION
  Report Type: 
  Country: None (occurrence: None)
  Receive Date: 20101124
  Receipt Date: 20101121
  Transmission Date: 20110411
  Serious: No
  Sender: FDA-Public Use
  Company Number: US-PFIZER INC-2010153933

PATIENT
  Sex: Male
  Weight: 78.458 kg

DRUGS (2)
  1. VIAGRA [Suspect]
     Indication: ERECTILE DYSFUNCTION
     Dosage: 25MG TABLET AS NEEDED
     Route: 048
     Dates: start: 20030824
  2. VIAGRA [Suspect]
     Dosage: 50MG AS NEEDED

REACTIONS (1)
  - DRUG INEFFECTIVE [None]
